FAERS Safety Report 24923115 (Version 3)
Quarter: 2025Q3

REPORT INFORMATION
  Report Type: Spontaneous
  Country: JP (occurrence: JP)
  Receive Date: 20250204
  Receipt Date: 20250810
  Transmission Date: 20251021
  Serious: Yes (Other)
  Sender: ALEXION PHARMACEUTICALS
  Company Number: JP-ASTRAZENECA-250010227_011620_P_1

PATIENT
  Sex: Male

DRUGS (2)
  1. LYNPARZA [Suspect]
     Active Substance: OLAPARIB
     Indication: Hormone-refractory prostate cancer
  2. LYNPARZA [Suspect]
     Active Substance: OLAPARIB

REACTIONS (2)
  - Interstitial lung disease [Recovered/Resolved]
  - Malignant neoplasm progression [Unknown]
